FAERS Safety Report 8504322 (Version 3)
Quarter: 2017Q2

REPORT INFORMATION
  Report Type: Spontaneous
  Country: FR (occurrence: FR)
  Receive Date: 20120411
  Receipt Date: 20170621
  Transmission Date: 20170830
  Serious: Yes (Life-Threatening, Hospitalization, Disabling, Other)
  Sender: FDA-Public Use
  Company Number: FR-GLAXOSMITHKLINE-B0639918A

PATIENT
  Age: 22 Year
  Sex: Female

DRUGS (2)
  1. LAMICTAL [Suspect]
     Active Substance: LAMOTRIGINE
     Indication: EPILEPSY
     Route: 048
     Dates: start: 20100119, end: 20100213
  2. DEPAKINE [Suspect]
     Active Substance: VALPROATE SODIUM
     Indication: EPILEPSY
     Route: 048
     Dates: start: 200805, end: 20100214

REACTIONS (46)
  - Toxic epidermal necrolysis [Recovered/Resolved with Sequelae]
  - Pyrexia [Recovering/Resolving]
  - Hernia [Unknown]
  - Eye discharge [Unknown]
  - Corneal opacity [Not Recovered/Not Resolved]
  - Itching scar [Not Recovered/Not Resolved]
  - Asthenia [Unknown]
  - Mouth ulceration [Recovered/Resolved]
  - Ulcerative keratitis [Recovered/Resolved with Sequelae]
  - Iris incarceration [Unknown]
  - Dermal cyst [Unknown]
  - Visual acuity reduced [Not Recovered/Not Resolved]
  - Mucosal erosion [Recovering/Resolving]
  - Photophobia [Unknown]
  - Keratitis [Unknown]
  - Symblepharon [Recovered/Resolved with Sequelae]
  - Weight decreased [Recovered/Resolved]
  - Eyelid oedema [Recovering/Resolving]
  - Rash papular [Unknown]
  - Fatigue [Not Recovered/Not Resolved]
  - Oral mucosal exfoliation [Unknown]
  - Lip disorder [Recovering/Resolving]
  - Corneal perforation [Unknown]
  - Alopecia [Unknown]
  - Pigmentation lip [Recovered/Resolved with Sequelae]
  - Skin discolouration [Recovered/Resolved with Sequelae]
  - Incorrect dose administered [Unknown]
  - Pigmentation disorder [Unknown]
  - Dysphagia [Recovering/Resolving]
  - Conjunctivitis [Recovered/Resolved with Sequelae]
  - Eye pain [Unknown]
  - Nail disorder [Recovering/Resolving]
  - Depression [Unknown]
  - Blindness [Not Recovered/Not Resolved]
  - Anxiety [Unknown]
  - Ulcerative keratitis [Recovering/Resolving]
  - Mouth haemorrhage [Recovering/Resolving]
  - Corneal oedema [Recovered/Resolved with Sequelae]
  - Keratitis [Not Recovered/Not Resolved]
  - Skin disorder [Unknown]
  - Stomatitis [Unknown]
  - Irritability [Unknown]
  - Eye excision [Not Recovered/Not Resolved]
  - Blister [Unknown]
  - Productive cough [Unknown]
  - Post-traumatic stress disorder [Unknown]

NARRATIVE: CASE EVENT DATE: 2010
